FAERS Safety Report 8116980-7 (Version None)
Quarter: 2011Q4

REPORT INFORMATION
  Report Type: 
  Country: None (occurrence: None)
  Receive Date: 20111227
  Receipt Date: 20110315
  Transmission Date: 20120403
  Serious: Yes (Other)
  Sender: FDA-Public Use
  Company Number: PHHY2011US22295

PATIENT
  Sex: Female

DRUGS (7)
  1. ATENOLOL [Concomitant]
  2. CHEMOTHERAPEUTICS NOS (NO INGREDIENTS/SUBSTANCES) [Concomitant]
  3. PROCRIT [Concomitant]
  4. LEVOTHYROXINE SODIUM [Concomitant]
  5. FEMARA [Suspect]
     Dosage: 2.5 MG, QD
  6. SIMVASTATIN [Concomitant]
  7. NUPROGEN (NUPROGEN) [Concomitant]

REACTIONS (1)
  - VENOUS THROMBOSIS LIMB [None]
